FAERS Safety Report 16735060 (Version 1)
Quarter: 2019Q4

REPORT INFORMATION
  Report Type: Spontaneous
  Country: US (occurrence: US)
  Receive Date: 20190822
  Receipt Date: 20190822
  Transmission Date: 20200122
  Serious: Yes (Other)
  Sender: FDA-Public Use
  Company Number: None

PATIENT
  Sex: Female

DRUGS (3)
  1. EXLAX [Concomitant]
  2. MIRALAX [Suspect]
     Active Substance: POLYETHYLENE GLYCOL 3350
     Indication: CONSTIPATION
     Dates: start: 20180710, end: 20190509
  3. PROBIOTICS [Concomitant]
     Active Substance: PROBIOTICS NOS

REACTIONS (13)
  - Crying [None]
  - Social avoidant behaviour [None]
  - Abnormal behaviour [None]
  - Intentional self-injury [None]
  - Suicidal ideation [None]
  - Educational problem [None]
  - Anger [None]
  - Anxiety [None]
  - Depression [None]
  - Affect lability [None]
  - Screaming [None]
  - Aggression [None]
  - Defiant behaviour [None]
